FAERS Safety Report 6702455-6 (Version None)
Quarter: 2010Q2

REPORT INFORMATION
  Report Type: 
  Country: None (occurrence: None)
  Receive Date: 20100429
  Receipt Date: 20100224
  Transmission Date: 20101027
  Serious: Yes (Hospitalization)
  Sender: FDA-Public Use
  Company Number: B0642587A

PATIENT
  Age: 7 Year
  Sex: Male

DRUGS (1)
  1. ZENTEL [Suspect]
     Indication: HELMINTHIC INFECTION
     Dosage: 2TAB PER DAY
     Route: 048
     Dates: start: 20100315, end: 20100315

REACTIONS (1)
  - HAEMATURIA [None]
